FAERS Safety Report 25805019 (Version 1)
Quarter: 2025Q3

REPORT INFORMATION
  Report Type: Spontaneous
  Country: US (occurrence: US)
  Receive Date: 20250916
  Receipt Date: 20250916
  Transmission Date: 20251020
  Serious: No
  Sender: AMGEN
  Company Number: US-AMGEN-USASP2025180299

PATIENT
  Age: 72 Year
  Sex: Female

DRUGS (3)
  1. EVENITY [Suspect]
     Active Substance: ROMOSOZUMAB-AQQG
     Indication: Osteoporosis
     Route: 065
  2. DILTIAZEM [Concomitant]
     Active Substance: DILTIAZEM
     Route: 065
  3. IBUPROFEN [Concomitant]
     Active Substance: IBUPROFEN
     Route: 065

REACTIONS (8)
  - Exostosis [Unknown]
  - Blood alkaline phosphatase increased [Unknown]
  - Atrial flutter [Unknown]
  - Pain [Unknown]
  - Dehydration [Unknown]
  - Heart rate increased [Unknown]
  - Muscle spasms [Recovering/Resolving]
  - Myalgia [Unknown]
